FAERS Safety Report 5570755-1 (Version None)
Quarter: 2007Q4

REPORT INFORMATION
  Report Type: 
  Country: None (occurrence: None)
  Receive Date: 20071221
  Receipt Date: 20071129
  Transmission Date: 20080405
  Serious: No
  Sender: FDA-Public Use
  Company Number: US-BAUSCH-2007BL004330

PATIENT
  Sex: Male

DRUGS (2)
  1. ZYLET [Suspect]
     Indication: KERATOCONJUNCTIVITIS SICCA
     Route: 047
     Dates: start: 20070929, end: 20071008
  2. ZYLET [Suspect]
     Indication: ROSACEA
     Route: 047
     Dates: start: 20070929, end: 20071008

REACTIONS (1)
  - MYDRIASIS [None]
